FAERS Safety Report 20750243 (Version 5)
Quarter: 2022Q2

REPORT INFORMATION
  Report Type: Spontaneous
  Country: US (occurrence: US)
  Receive Date: 20220426
  Receipt Date: 20220628
  Transmission Date: 20220721
  Serious: No
  Sender: FDA-Public Use
  Company Number: US-PFIZER INC-202200560341

PATIENT
  Age: 55 Year
  Sex: Female
  Weight: 68.027 kg

DRUGS (2)
  1. IBRANCE [Suspect]
     Active Substance: PALBOCICLIB
     Dosage: UNK
     Dates: start: 20220407
  2. IBRANCE [Suspect]
     Active Substance: PALBOCICLIB
     Dosage: 100 MG
     Dates: start: 20220224, end: 20220617

REACTIONS (11)
  - Stomatitis [Unknown]
  - Fatigue [Unknown]
  - Insomnia [Unknown]
  - Nausea [Unknown]
  - Bone pain [Unknown]
  - Weight decreased [Unknown]
  - Increased tendency to bruise [Unknown]
  - Alopecia [Unknown]
  - White blood cell count decreased [Unknown]
  - Pain [Unknown]
  - Gastrointestinal disorder [Unknown]
